FAERS Safety Report 14686790 (Version 9)
Quarter: 2019Q2

REPORT INFORMATION
  Report Type: Spontaneous
  Country: US (occurrence: US)
  Receive Date: 20180327
  Receipt Date: 20190508
  Transmission Date: 20190711
  Serious: Yes (Hospitalization, Other)
  Sender: FDA-Public Use
  Company Number: US-ACTELION-A-NJ2018-169686

PATIENT
  Age: 79 Year
  Sex: Female
  Weight: 68.93 kg

DRUGS (15)
  1. LETAIRIS [Suspect]
     Active Substance: AMBRISENTAN
     Indication: PRODUCT USED FOR UNKNOWN INDICATION
     Dosage: 5 MG, QD
     Route: 065
     Dates: start: 20110920
  2. ASPIRIN. [Concomitant]
     Active Substance: ASPIRIN
     Dosage: UNK
     Dates: start: 2010
  3. LIPITOR [Concomitant]
     Active Substance: ATORVASTATIN CALCIUM
     Dosage: UNK
     Dates: start: 2010
  4. UPTRAVI [Suspect]
     Active Substance: SELEXIPAG
     Dosage: UNK
     Route: 048
     Dates: start: 20170428
  5. UPTRAVI [Suspect]
     Active Substance: SELEXIPAG
     Dosage: 1200 MCG, BID
     Route: 048
     Dates: start: 20170712
  6. ORENITRAM [Suspect]
     Active Substance: TREPROSTINIL
     Indication: PRODUCT USED FOR UNKNOWN INDICATION
     Route: 065
  7. REVATIO [Concomitant]
     Active Substance: SILDENAFIL CITRATE
  8. LASIX [Concomitant]
     Active Substance: FUROSEMIDE
     Dosage: UNK
     Dates: start: 2010
  9. GLUCOTROL [Concomitant]
     Active Substance: GLIPIZIDE
     Dosage: UNK
     Dates: start: 2016
  10. ELIQUIS [Concomitant]
     Active Substance: APIXABAN
  11. ATIVAN [Concomitant]
     Active Substance: LORAZEPAM
     Dosage: UNK
     Dates: start: 2013
  12. UPTRAVI [Suspect]
     Active Substance: SELEXIPAG
     Indication: PULMONARY ARTERIAL HYPERTENSION
     Dosage: 1400 MCG, BID
     Route: 048
  13. COREG [Concomitant]
     Active Substance: CARVEDILOL
     Dosage: UNK
     Dates: start: 2013
  14. AMBRISENTAN [Concomitant]
     Active Substance: AMBRISENTAN
     Dosage: UNK
     Dates: start: 2011
  15. SILDENAFIL. [Concomitant]
     Active Substance: SILDENAFIL
     Dosage: UNK
     Dates: start: 2011

REACTIONS (36)
  - Pulmonary arterial hypertension [Unknown]
  - Pain [Not Recovered/Not Resolved]
  - Weight decreased [Unknown]
  - Nausea [Recovered/Resolved]
  - Blood glucose increased [Recovered/Resolved]
  - Malaise [Recovered/Resolved]
  - Cardiomegaly [Recovered/Resolved]
  - Dyschezia [Not Recovered/Not Resolved]
  - Back pain [Unknown]
  - Sinusitis [Recovering/Resolving]
  - Unevaluable event [Not Recovered/Not Resolved]
  - Vomiting [Recovered/Resolved]
  - Lung disorder [Recovered/Resolved]
  - Dyspepsia [Not Recovered/Not Resolved]
  - Thyroid stimulating hormone deficiency [Recovered/Resolved]
  - Abdominal pain upper [Not Recovered/Not Resolved]
  - Sinus disorder [Not Recovered/Not Resolved]
  - Decreased appetite [Unknown]
  - Palpitations [Recovered/Resolved]
  - Dysarthria [Recovered/Resolved]
  - Myalgia [Not Recovered/Not Resolved]
  - Nasal congestion [Unknown]
  - Condition aggravated [Unknown]
  - Flank pain [Unknown]
  - Dyspnoea [Recovered/Resolved]
  - Aortic valve replacement [Unknown]
  - Atrial fibrillation [Recovered/Resolved]
  - Aortic stenosis [Unknown]
  - Catatonia [Recovered/Resolved]
  - Syncope [Recovered/Resolved]
  - Presyncope [Recovered/Resolved]
  - Memory impairment [Recovered/Resolved]
  - Supraventricular tachycardia [Recovered/Resolved]
  - Spinal osteoarthritis [Unknown]
  - Abdominal discomfort [Unknown]
  - Movement disorder [Unknown]

NARRATIVE: CASE EVENT DATE: 20170713
